FAERS Safety Report 5623516-9 (Version None)
Quarter: 2008Q1

REPORT INFORMATION
  Report Type: 
  Country: None (occurrence: None)
  Receive Date: 20080212
  Receipt Date: 20080131
  Transmission Date: 20080703
  Serious: Yes (Other)
  Sender: FDA-Public Use
  Company Number: US-ELI_LILLY_AND_COMPANY-US200801007103

PATIENT
  Sex: Female

DRUGS (8)
  1. HUMALOG [Suspect]
     Dosage: 3 U, OTHER
  2. HUMALOG [Suspect]
     Dosage: 3 U, OTHER
  3. HUMALOG [Suspect]
     Dosage: 5 U, OTHER
  4. HUMALOG [Suspect]
     Dosage: 2 U, AS NEEDED
  5. LANTUS [Concomitant]
  6. AVANDIA [Concomitant]
  7. PANGESTYME EC [Concomitant]
     Dosage: UNK, 4/D
  8. LONOX [Concomitant]
     Indication: DIARRHOEA

REACTIONS (7)
  - DIARRHOEA [None]
  - DYSPEPSIA [None]
  - HEPATIC CIRRHOSIS [None]
  - MASS EXCISION [None]
  - PANCREATIC CARCINOMA [None]
  - PANCREATIC MASS [None]
  - WEIGHT DECREASED [None]
